FAERS Safety Report 13134821 (Version 1)
Quarter: 2017Q1

REPORT INFORMATION
  Report Type: Spontaneous
  Country: AU (occurrence: AU)
  Receive Date: 20170120
  Receipt Date: 20170120
  Transmission Date: 20170428
  Serious: No
  Sender: FDA-Public Use
  Company Number: AU-TOLMAR, INC.-2016AU002430

PATIENT
  Sex: Female

DRUGS (1)
  1. ELIGARD [Suspect]
     Active Substance: LEUPROLIDE ACETATE
     Indication: PRECOCIOUS PUBERTY
     Route: 065

REACTIONS (1)
  - Off label use [Unknown]
